FAERS Safety Report 9384555 (Version 2)
Quarter: 2013Q3

REPORT INFORMATION
  Report Type: Other
  Country: FR (occurrence: FR)
  Receive Date: 20130705
  Receipt Date: 20130710
  Transmission Date: 20140515
  Serious: Yes (Death, Hospitalization)
  Sender: FDA-Public Use
  Company Number: FR-MPIJNJ-2013-05067

PATIENT
  Sex: 0

DRUGS (7)
  1. VELCADE [Suspect]
     Indication: PLASMA CELL MYELOMA
     Dosage: 2.14 MG, CYCLIC
     Route: 042
     Dates: start: 20120130, end: 20120314
  2. KARDEGIC [Suspect]
     Indication: PRODUCT USED FOR UNKNOWN INDICATION
     Dosage: 75 MG, UNK
     Route: 048
     Dates: start: 20120308, end: 20120322
  3. CALCIPARINE [Concomitant]
     Dosage: UNK
     Route: 058
     Dates: start: 20120116, end: 20120302
  4. PLAVIX                             /01220701/ [Concomitant]
     Dosage: 1 DF, UNK
     Route: 048
     Dates: start: 20120303, end: 20120307
  5. BACTRIM [Concomitant]
     Dosage: 800 MG, UNK
     Route: 048
     Dates: start: 20120128
  6. ZELITREX                           /01269701/ [Concomitant]
     Dosage: 1 DF, UNK
     Route: 048
     Dates: start: 20120128
  7. DEXAMETHASONE [Concomitant]
     Dosage: 20 MG, UNK
     Dates: start: 20120127

REACTIONS (2)
  - Death [Fatal]
  - Gastrointestinal haemorrhage [Unknown]
